FAERS Safety Report 12739893 (Version 1)
Quarter: 2016Q3

REPORT INFORMATION
  Report Type: Spontaneous
  Country: JP (occurrence: JP)
  Receive Date: 20160913
  Receipt Date: 20160913
  Transmission Date: 20161109
  Serious: Yes (Hospitalization)
  Sender: FDA-Public Use
  Company Number: JP-SA-2016SA166906

PATIENT
  Age: 64 Year
  Sex: Male
  Weight: 41 kg

DRUGS (15)
  1. ELPLAT [Suspect]
     Active Substance: OXALIPLATIN
     Indication: RECTAL CANCER
     Dosage: CONTINUOUS INFUSION, 84.8 MG/M2
     Route: 041
     Dates: start: 20160812, end: 20160812
  2. IRINOTECAN [Suspect]
     Active Substance: IRINOTECAN
     Indication: RECTAL CANCER
     Dosage: CONTINUOUS INFUSION, 149.7 MG/M2
     Route: 041
     Dates: start: 20160812, end: 20160812
  3. IRINOTECAN [Suspect]
     Active Substance: IRINOTECAN
     Indication: METASTASES TO LIVER
     Dosage: CONTINUOUS INFUSION, 149.7 MG/M2
     Route: 041
     Dates: start: 20160812, end: 20160812
  4. CALCIUM LEVOFOLINATE [Suspect]
     Active Substance: LEVOLEUCOVORIN CALCIUM
     Indication: METASTASES TO LYMPH NODES
     Dosage: CONTINUOUS INFUSION, 199.6 MG/M2
     Route: 041
     Dates: start: 20160812, end: 20160812
  5. ELPLAT [Suspect]
     Active Substance: OXALIPLATIN
     Indication: METASTASES TO LIVER
     Dosage: CONTINUOUS INFUSION, 84.8 MG/M2
     Route: 041
     Dates: start: 20160812, end: 20160812
  6. 5-FU [Suspect]
     Active Substance: FLUOROURACIL
     Indication: METASTASES TO LIVER
     Dosage: CONTINIOUS INFUSION, 2394.8 MG/M2/D1-2
     Route: 041
     Dates: start: 20160812, end: 20160812
  7. IRINOTECAN [Suspect]
     Active Substance: IRINOTECAN
     Indication: METASTASES TO LYMPH NODES
     Dosage: CONTINUOUS INFUSION, 149.7 MG/M2
     Route: 041
     Dates: start: 20160812, end: 20160812
  8. CALCIUM LEVOFOLINATE [Suspect]
     Active Substance: LEVOLEUCOVORIN CALCIUM
     Indication: METASTASES TO LIVER
     Dosage: CONTINUOUS INFUSION, 199.6 MG/M2
     Route: 041
     Dates: start: 20160812, end: 20160812
  9. ELPLAT [Suspect]
     Active Substance: OXALIPLATIN
     Indication: METASTASES TO LYMPH NODES
     Dosage: CONTINUOUS INFUSION, 84.8 MG/M2
     Route: 041
     Dates: start: 20160812, end: 20160812
  10. 5-FU [Suspect]
     Active Substance: FLUOROURACIL
     Indication: RECTAL CANCER
     Dosage: CONTINIOUS INFUSION, 2394.8 MG/M2/D1-2
     Route: 041
     Dates: start: 20160812, end: 20160812
  11. AVASTIN [Concomitant]
     Active Substance: BEVACIZUMAB
     Indication: METASTASES TO LYMPH NODES
     Dosage: DOSAGE FORM: INJECTION, CONTINUOUS INFUSION
     Route: 065
     Dates: start: 20160812, end: 20160812
  12. 5-FU [Suspect]
     Active Substance: FLUOROURACIL
     Indication: METASTASES TO LYMPH NODES
     Dosage: CONTINIOUS INFUSION, 2394.8 MG/M2/D1-2
     Route: 041
     Dates: start: 20160812, end: 20160812
  13. AVASTIN [Concomitant]
     Active Substance: BEVACIZUMAB
     Indication: RECTAL CANCER
     Dosage: DOSAGE FORM: INJECTION, CONTINUOUS INFUSION
     Route: 065
     Dates: start: 20160812, end: 20160812
  14. CALCIUM LEVOFOLINATE [Suspect]
     Active Substance: LEVOLEUCOVORIN CALCIUM
     Indication: RECTAL CANCER
     Dosage: CONTINUOUS INFUSION, 199.6 MG/M2
     Route: 041
     Dates: start: 20160812, end: 20160812
  15. AVASTIN [Concomitant]
     Active Substance: BEVACIZUMAB
     Indication: METASTASES TO LIVER
     Dosage: DOSAGE FORM: INJECTION, CONTINUOUS INFUSION
     Route: 065
     Dates: start: 20160812, end: 20160812

REACTIONS (4)
  - Decreased appetite [Not Recovered/Not Resolved]
  - Hypokalaemia [Not Recovered/Not Resolved]
  - Fatigue [Not Recovered/Not Resolved]
  - Hypomagnesaemia [Unknown]

NARRATIVE: CASE EVENT DATE: 20160829
